FAERS Safety Report 11079242 (Version 1)
Quarter: 2015Q2

REPORT INFORMATION
  Report Type: Spontaneous
  Country: ES (occurrence: None)
  Receive Date: 20150428
  Receipt Date: 20150428
  Transmission Date: 20150821
  Serious: Yes (Other)
  Sender: FDA-Public Use
  Company Number: ES-ZYDUS-007729

PATIENT
  Age: 35 Year
  Sex: Male

DRUGS (2)
  1. PEGINTERFERON (PEGINTERFERON) [Suspect]
     Active Substance: PEGINTERFERON ALFA-2A OR PEGINTERFERON ALFA-2B
  2. RIBAVIRIN (RIBAVIRIN) [Suspect]
     Active Substance: RIBAVIRIN

REACTIONS (2)
  - Staphylococcus test positive [None]
  - Pyoderma gangrenosum [None]
